FAERS Safety Report 12070670 (Version 4)
Quarter: 2024Q2

REPORT INFORMATION
  Report Type: Spontaneous
  Country: JP (occurrence: JP)
  Receive Date: 20160211
  Receipt Date: 20240424
  Transmission Date: 20240716
  Serious: Yes (Other)
  Sender: FDA-Public Use
  Company Number: JP-SA-2016SA024459

PATIENT
  Age: 72 Year
  Sex: Male

DRUGS (1)
  1. DOCETAXEL [Suspect]
     Active Substance: DOCETAXEL\DOCETAXEL ANHYDROUS
     Indication: Angiosarcoma
     Dosage: 25 MG/M2, QW, INFUSION

REACTIONS (3)
  - Hypovolaemic shock [Unknown]
  - Off label use [Unknown]
  - Diarrhoea [Unknown]
